FAERS Safety Report 10497979 (Version 2)
Quarter: 2014Q4

REPORT INFORMATION
  Report Type: Spontaneous
  Country: US (occurrence: None)
  Receive Date: 20141002
  Receipt Date: 20141104
  Transmission Date: 20150528
  Serious: Yes (Disabling, Other)
  Sender: FDA-Public Use
  Company Number: FK201403872

PATIENT
  Age: 87 Year
  Sex: Female
  Weight: 51.26 kg

DRUGS (21)
  1. DILTIAZEM [Concomitant]
     Active Substance: DILTIAZEM
  2. VIGAMOX (MOXIFLOXACIN HYDROCHLORIDE) [Concomitant]
  3. ACULAR [Concomitant]
     Active Substance: KETOROLAC TROMETHAMINE
  4. MECLIZINE [Concomitant]
     Active Substance: MECLIZINE\MECLIZINE HYDROCHLORIDE
  5. NITROQUICK (GLYCERYL TRINITRATE) [Concomitant]
  6. AMIODARONE [Concomitant]
     Active Substance: AMIODARONE
  7. IMDUR ER (ISOSORBIDE MONONITRATE) [Concomitant]
  8. LOVENOX [Concomitant]
     Active Substance: ENOXAPARIN SODIUM
  9. RANITIDINE [Concomitant]
     Active Substance: RANITIDINE\RANITIDINE HYDROCHLORIDE
  10. GENTAMICIN. [Suspect]
     Active Substance: GENTAMICIN
     Indication: PRODUCT USED FOR UNKNOWN INDICATION
     Dosage: UNKNOWN
     Route: 031
     Dates: start: 20130910, end: 20130910
  11. ALPRAZOLAM. [Concomitant]
     Active Substance: ALPRAZOLAM
  12. ERYTHROMYCIN. [Concomitant]
     Active Substance: ERYTHROMYCIN
  13. ARICEPT [Concomitant]
     Active Substance: DONEPEZIL HYDROCHLORIDE
  14. CALCIUM [Concomitant]
     Active Substance: CALCIUM
  15. FOLIC ACID. [Concomitant]
     Active Substance: FOLIC ACID
  16. FUROSEMIDE. [Concomitant]
     Active Substance: FUROSEMIDE
  17. LOSARTAN [Concomitant]
     Active Substance: LOSARTAN
  18. TEMAZEPAM. [Concomitant]
     Active Substance: TEMAZEPAM
  19. PRED FORTE (PREDNISOLONE ACETATE) [Concomitant]
  20. GENTEAL MILD [Concomitant]
     Active Substance: HYPROMELLOSE 2910 (4000 MPA.S)
  21. SIMVASTATIN. [Concomitant]
     Active Substance: SIMVASTATIN

REACTIONS (6)
  - Blindness [None]
  - Incorrect route of drug administration [None]
  - Off label use [None]
  - Toxic anterior segment syndrome [None]
  - Eye injury [None]
  - Eye pain [None]
